FAERS Safety Report 10045413 (Version 2)
Quarter: 2014Q1

REPORT INFORMATION
  Report Type: Report from Study
  Country: US (occurrence: US)
  Receive Date: 20140328
  Receipt Date: 20140328
  Transmission Date: 20141002
  Serious: Yes (Hospitalization)
  Sender: FDA-Public Use
  Company Number: US-BRISTOL-MYERS SQUIBB COMPANY-19946490

PATIENT
  Age: 70 Year
  Sex: Female
  Weight: 59.9 kg

DRUGS (36)
  1. IPILIMUMAB [Suspect]
     Indication: MALIGNANT MELANOMA
     Route: 042
     Dates: start: 20131205, end: 20131205
  2. VEMURAFENIB [Suspect]
     Indication: MALIGNANT MELANOMA
     Dosage: CYCLE 1: 720 MG PO BID?CYCLE 2: 480MG BID
     Route: 048
     Dates: start: 20131017, end: 20131128
  3. ASPIRIN [Concomitant]
     Dates: start: 20120606
  4. CALTRATE [Concomitant]
     Dates: start: 20120606
  5. ESTRADIOL [Concomitant]
     Dates: start: 20120606
  6. FISH OIL [Concomitant]
     Dates: start: 20120606
  7. LASIX [Concomitant]
     Dosage: 200MG/20ML,IV PUSH
     Route: 042
     Dates: start: 20120606
  8. ADVIL [Concomitant]
     Dates: start: 20120606
  9. FERROUS SULFATE [Concomitant]
     Dates: start: 20120606
  10. SYNTHROID [Concomitant]
     Dates: start: 20120606
  11. LISINOPRIL [Concomitant]
     Dates: start: 20120606
  12. METOPROLOL [Concomitant]
     Dosage: TABS
     Route: 048
     Dates: start: 20120606
  13. MULTIVITAMIN [Concomitant]
     Dosage: 1DF:1TABLET,EVERY MORNING
     Dates: start: 20120606
  14. OXYCODONE HCL + ACETAMINOPHEN [Concomitant]
     Dates: start: 20120615
  15. AMITRIPTYLINE [Concomitant]
     Dosage: TABS,AT BED TIME
     Route: 048
     Dates: start: 20130606
  16. VICODIN [Concomitant]
     Dates: start: 20130927
  17. HYDROXYZINE [Concomitant]
     Dates: start: 20130927
  18. PRILOSEC [Concomitant]
     Dates: start: 20131001
  19. LEVOTHYROXINE [Concomitant]
     Dosage: TABS. BEFORE BREAKFAST
     Route: 048
  20. OMEPRAZOLE [Concomitant]
     Dosage: CAPS
     Route: 048
  21. SARNA [Concomitant]
     Route: 061
  22. DIURIL [Concomitant]
     Dosage: IV PUSH
     Route: 042
  23. CIPROFLOXACIN [Concomitant]
     Dosage: TABS
     Route: 048
  24. SENNA-S [Concomitant]
     Dosage: 1DF:50MG-8.6MG TAB
     Route: 048
  25. HEPARIN [Concomitant]
     Dosage: 1DF:5000 UNITS PER ML.
     Route: 058
  26. MAGNESIUM CITRATE [Concomitant]
     Route: 048
  27. DULCOLAX [Concomitant]
  28. NACL 0.9% [Concomitant]
  29. SODIUM BICARBONATE [Concomitant]
  30. POTASSIUM CHLORIDE [Concomitant]
  31. PREDNISONE [Concomitant]
  32. MIRALAX [Concomitant]
  33. VERSED [Concomitant]
  34. INSULIN [Concomitant]
  35. FENTANYL [Concomitant]
  36. PEPCID [Concomitant]

REACTIONS (1)
  - Blood creatine increased [Recovering/Resolving]
